FAERS Safety Report 6907156-7 (Version None)
Quarter: 2010Q3

REPORT INFORMATION
  Report Type: 
  Country: None (occurrence: None)
  Receive Date: 20100804
  Receipt Date: 20100204
  Transmission Date: 20110219
  Serious: No
  Sender: FDA-Public Use
  Company Number: US-PFIZER INC-2005028768

PATIENT
  Sex: Female
  Weight: 84 kg

DRUGS (14)
  1. NARDIL [Suspect]
     Route: 048
     Dates: start: 19950101
  2. PREDNISONE TAB [Suspect]
     Route: 048
  3. NYSTATIN [Suspect]
     Indication: FUNGAL INFECTION
  4. BENADRYL [Suspect]
  5. ADVAIR DISKUS 100/50 [Suspect]
     Indication: ASTHMA
     Route: 055
  6. KLONOPIN [Concomitant]
  7. SYNTHROID [Concomitant]
  8. MUCINEX [Concomitant]
  9. ESTROGENS SOL/INJ [Concomitant]
  10. MIACALCIN [Concomitant]
  11. NEXIUM [Concomitant]
  12. ZANTAC [Concomitant]
  13. MAXAIR [Concomitant]
  14. ATROVENT [Concomitant]

REACTIONS (26)
  - ACTIVITIES OF DAILY LIVING IMPAIRED [None]
  - ANXIETY [None]
  - ASTHMA [None]
  - BLOOD PRESSURE INCREASED [None]
  - COUGH [None]
  - DEPRESSION [None]
  - DIZZINESS [None]
  - EAR DISCOMFORT [None]
  - ECCHYMOSIS [None]
  - EUPHORIC MOOD [None]
  - FATIGUE [None]
  - FEELING ABNORMAL [None]
  - FLUSHING [None]
  - FUNGAL INFECTION [None]
  - HEADACHE [None]
  - HEART RATE INCREASED [None]
  - HUNGER [None]
  - HYPERHIDROSIS [None]
  - HYPOTENSION [None]
  - PAIN IN EXTREMITY [None]
  - POOR QUALITY SLEEP [None]
  - PRURITUS [None]
  - SINUS HEADACHE [None]
  - SOMNOLENCE [None]
  - TREMOR [None]
  - WEIGHT INCREASED [None]
